FAERS Safety Report 26133844 (Version 1)
Quarter: 2025Q4

REPORT INFORMATION
  Report Type: Spontaneous
  Country: GB (occurrence: GB)
  Receive Date: 20251209
  Receipt Date: 20251209
  Transmission Date: 20260118
  Serious: Yes (Other)
  Sender: DEXCEL LTD.
  Company Number: None

PATIENT
  Age: 43 Year
  Sex: Male
  Weight: 79 kg

DRUGS (5)
  1. AMLODIPINE [Concomitant]
     Active Substance: AMLODIPINE BESYLATE
     Indication: Hypertension
  2. ACETIC ACID\DEXAMETHASONE\NEOMYCIN SULFATE [Suspect]
     Active Substance: ACETIC ACID\DEXAMETHASONE\NEOMYCIN SULFATE
     Indication: Ear infection
     Route: 001
     Dates: start: 20251203
  3. ACETIC ACID\DEXAMETHASONE\NEOMYCIN SULFATE [Suspect]
     Active Substance: ACETIC ACID\DEXAMETHASONE\NEOMYCIN SULFATE
     Indication: Ear infection
     Route: 001
     Dates: start: 20251203
  4. InsulinINSULIN [Concomitant]
     Indication: Diabetes mellitus
  5. ACETIC ACID\DEXAMETHASONE\NEOMYCIN SULFATE [Suspect]
     Active Substance: ACETIC ACID\DEXAMETHASONE\NEOMYCIN SULFATE
     Indication: Ear infection
     Route: 001
     Dates: start: 20251203

REACTIONS (2)
  - Deafness [Not Recovered/Not Resolved]
  - Discharge [Not Recovered/Not Resolved]

NARRATIVE: CASE EVENT DATE: 20251205
